FAERS Safety Report 21386186 (Version 1)
Quarter: 2022Q3

REPORT INFORMATION
  Report Type: Spontaneous
  Country: KR (occurrence: KR)
  Receive Date: 20220928
  Receipt Date: 20220928
  Transmission Date: 20221027
  Serious: Yes (Other)
  Sender: FDA-Public Use
  Company Number: KR-ORGANON-O2209KOR001712

PATIENT
  Sex: Female

DRUGS (3)
  1. REMERON [Suspect]
     Active Substance: MIRTAZAPINE
     Indication: Essential hypertension
     Dosage: 1 FORMULATION, 1 DAY (FORMULATION REPORTED AS FILM-COATED TABLET0
     Route: 048
     Dates: start: 20171018
  2. ATENOLOL [Suspect]
     Active Substance: ATENOLOL
     Indication: Essential hypertension
     Dosage: 0.5 FORMULATION, 1 DAY(QD)
     Route: 048
     Dates: start: 20170818
  3. ARIPIPRAZOLE [Suspect]
     Active Substance: ARIPIPRAZOLE
     Indication: Essential hypertension
     Dosage: 0.25 FORMULATION, 1 DAY (FORMULATION REPORTED AS TRADITIONAL TABLET)
     Route: 048
     Dates: start: 20171115

REACTIONS (1)
  - Listless [Recovered/Resolved]

NARRATIVE: CASE EVENT DATE: 20171208
